FAERS Safety Report 9992734 (Version 1)
Quarter: 2014Q1

REPORT INFORMATION
  Report Type: Report from Study
  Country: US (occurrence: US)
  Receive Date: 20140310
  Receipt Date: 20140310
  Transmission Date: 20141002
  Serious: No
  Sender: FDA-Public Use
  Company Number: US-ABBVIE-13P-163-1114289-00

PATIENT
  Age: 26 Year
  Sex: Female
  Weight: 107.6 kg

DRUGS (4)
  1. LUPRON DEPOT [Suspect]
     Indication: ENDOMETRIOSIS
     Route: 030
     Dates: start: 20130326, end: 20130326
  2. LUPRON DEPOT [Suspect]
     Indication: VAGINAL HAEMORRHAGE
  3. NORETHINDRONE ACETATE [Concomitant]
     Indication: PRODUCT USED FOR UNKNOWN INDICATION
     Dosage: STOPPED 2 WEEKS AGO
     Dates: start: 20130326, end: 201306
  4. SINEMET [Concomitant]
     Indication: RESTLESS LEGS SYNDROME
     Dosage: 25/100MG TABLET
     Route: 048

REACTIONS (5)
  - Hair growth abnormal [Not Recovered/Not Resolved]
  - Neck pain [Not Recovered/Not Resolved]
  - Nausea [Recovered/Resolved]
  - Dizziness [Recovered/Resolved]
  - Pain [Not Recovered/Not Resolved]
